FAERS Safety Report 6442549-6 (Version None)
Quarter: 2009Q4

REPORT INFORMATION
  Report Type: 
  Country: None (occurrence: None)
  Receive Date: 20091112
  Receipt Date: 20090917
  Transmission Date: 20100525
  Serious: Yes (Death, Other)
  Sender: FDA-Public Use
  Company Number: 2009-03807

PATIENT
  Age: 74 Year
  Sex: Female

DRUGS (3)
  1. VELCADE [Suspect]
     Indication: MULTIPLE MYELOMA
     Dosage: 1.8 MG, UNK, INTRAVENOUS
     Route: 042
     Dates: start: 20080801, end: 20090101
  2. MELPHALAN [Concomitant]
  3. THALIDOMIDE [Concomitant]

REACTIONS (4)
  - DISEASE RECURRENCE [None]
  - PRODUCT COUNTERFEIT [None]
  - RESPIRATORY FAILURE [None]
  - THERAPEUTIC RESPONSE DECREASED [None]
